FAERS Safety Report 5895482-2 (Version None)
Quarter: 2008Q3

REPORT INFORMATION
  Report Type: 
  Country: None (occurrence: None)
  Receive Date: 20080924
  Receipt Date: 20080919
  Transmission Date: 20090109
  Serious: Yes (Death)
  Sender: FDA-Public Use
  Company Number: JP-AVENTIS-200812962JP

PATIENT
  Age: 65 Year
  Sex: Female

DRUGS (2)
  1. LASIX [Suspect]
     Route: 048
     Dates: start: 20071001, end: 20071201
  2. UNKNOWN DRUG [Suspect]

REACTIONS (1)
  - APLASTIC ANAEMIA [None]
